FAERS Safety Report 8201691-X (Version None)
Quarter: 2012Q1

REPORT INFORMATION
  Report Type: 
  Country: None (occurrence: None)
  Receive Date: 20120312
  Receipt Date: 20120302
  Transmission Date: 20120608
  Serious: Yes (Hospitalization)
  Sender: FDA-Public Use
  Company Number: US-ASTRAZENECA-2012SE14790

PATIENT
  Age: 55 Year
  Sex: Female

DRUGS (2)
  1. NEXIUM [Suspect]
     Dosage: TWICE DAILY
     Route: 048
  2. NEXIUM [Suspect]
     Dosage: ONCE DAILY
     Route: 048

REACTIONS (6)
  - DIARRHOEA [None]
  - DEHYDRATION [None]
  - BLOOD PRESSURE INCREASED [None]
  - VOMITING [None]
  - INCORRECT DOSE ADMINISTERED [None]
  - DRUG DOSE OMISSION [None]
